FAERS Safety Report 20136288 (Version 2)
Quarter: 2021Q4

REPORT INFORMATION
  Report Type: Spontaneous
  Country: US (occurrence: US)
  Receive Date: 20211201
  Receipt Date: 20211209
  Transmission Date: 20220303
  Serious: No
  Sender: FDA-Public Use
  Company Number: US-ALLERGAN-2140272US

PATIENT
  Sex: Female

DRUGS (1)
  1. QULIPTA [Suspect]
     Active Substance: ATOGEPANT
     Indication: Migraine
     Dosage: UNK
     Dates: start: 202111, end: 202111

REACTIONS (2)
  - Feeling abnormal [Recovered/Resolved]
  - Drug ineffective [Unknown]

NARRATIVE: CASE EVENT DATE: 20211101
